FAERS Safety Report 9257451 (Version 3)
Quarter: 2013Q4

REPORT INFORMATION
  Report Type: Spontaneous
  Country: US (occurrence: US)
  Receive Date: 20130426
  Receipt Date: 20131122
  Transmission Date: 20140711
  Serious: Yes (Other)
  Sender: FDA-Public Use
  Company Number: US-PFIZER INC-2013125728

PATIENT
  Sex: Female

DRUGS (3)
  1. PROTONIX [Suspect]
     Dosage: 40 MG, UNK
  2. EFFEXOR XR [Suspect]
     Dosage: 75 MG, UNK
  3. EFFEXOR XR [Suspect]
     Dosage: 75MG AND 37.5MG ,UNK
     Dates: start: 20130502

REACTIONS (5)
  - Foot fracture [Unknown]
  - Hearing impaired [Unknown]
  - Memory impairment [Unknown]
  - Nervousness [Unknown]
  - Fall [Unknown]
